FAERS Safety Report 4742242-1 (Version None)
Quarter: 2005Q3

REPORT INFORMATION
  Report Type: 
  Country: None (occurrence: None)
  Receive Date: 20050811
  Receipt Date: 20050328
  Transmission Date: 20060218
  Serious: No
  Sender: FDA-Public Use
  Company Number: US-GLAXOSMITHKLINE-A0551471A

PATIENT
  Age: 61 Year
  Sex: Female

DRUGS (3)
  1. PAXIL CR [Suspect]
     Dosage: 37.5MG PER DAY
     Route: 048
     Dates: end: 20040101
  2. LOPID [Concomitant]
  3. DOXEPINE [Concomitant]

REACTIONS (3)
  - ANXIETY [None]
  - DIARRHOEA [None]
  - HEADACHE [None]
